FAERS Safety Report 7895500 (Version 4)
Quarter: 2012Q4

REPORT INFORMATION
  Report Type: 
  Country: JP (occurrence: JP)
  Receive Date: 20110412
  Receipt Date: 20121105
  Transmission Date: 20130627
  Serious: Yes (Hospitalization, Other)
  Sender: FDA-Public Use
  Company Number: PHHY2010JP59471

PATIENT
  Age: 71 Year
  Sex: Male

DRUGS (17)
  1. AFINITOR [Suspect]
     Indication: METASTATIC RENAL CELL CARCINOMA
     Dosage: 10 mg, daily
     Route: 048
     Dates: start: 20100507
  2. ZOMETA [Concomitant]
     Indication: METASTATIC RENAL CELL CARCINOMA
     Dosage: UNK
     Route: 041
     Dates: start: 20091218
  3. ZOMETA [Concomitant]
     Route: 041
  4. ZOMETA [Concomitant]
     Route: 041
  5. ZOMETA [Concomitant]
     Route: 041
  6. ZOMETA [Concomitant]
     Route: 041
  7. SALOBEL [Concomitant]
     Dosage: 1 DF, UNK
     Route: 048
     Dates: start: 20090323
  8. BLOPRESS [Concomitant]
     Dosage: 2 DF, UNK
     Route: 048
     Dates: start: 20091225
  9. ISODINE GARGLE [Concomitant]
     Indication: PROPHYLAXIS
     Route: 048
  10. ISODINE GARGLE [Concomitant]
     Route: 048
  11. MARZULENE S [Concomitant]
     Dosage: 3 g, UNK
     Route: 048
     Dates: start: 201001
  12. CARNACULIN [Concomitant]
     Dosage: 3 DF, UNK
     Route: 048
     Dates: start: 201001
  13. BAYASPIRIN [Concomitant]
     Dosage: 1 DF, UNK
     Route: 048
     Dates: start: 201001
  14. PAZOPANIB [Concomitant]
     Dosage: 800 mg
     Route: 048
     Dates: start: 20090325, end: 20090430
  15. VEG108844 [Concomitant]
     Dosage: 800 mg, UNK
     Route: 048
     Dates: start: 20090325, end: 20090430
  16. SORAFENIB TOSILATE [Concomitant]
     Indication: METASTATIC RENAL CELL CARCINOMA
     Dosage: 800 mg
     Route: 048
     Dates: start: 20090717
  17. SORAFENIB TOSILATE [Concomitant]
     Dosage: 400 mg
     Route: 048
     Dates: end: 20090323

REACTIONS (6)
  - Lymphocyte count decreased [Recovering/Resolving]
  - Neoplasm progression [Recovering/Resolving]
  - Malignant neoplasm progression [Recovering/Resolving]
  - Bone pain [Recovered/Resolved]
  - Musculoskeletal pain [Recovered/Resolved]
  - Hypertension [Not Recovered/Not Resolved]
